FAERS Safety Report 12515312 (Version 2)
Quarter: 2016Q3

REPORT INFORMATION
  Report Type: Spontaneous
  Country: US (occurrence: US)
  Receive Date: 20160630
  Receipt Date: 20160912
  Transmission Date: 20161109
  Serious: Yes (Hospitalization)
  Sender: FDA-Public Use
  Company Number: US-JNJFOC-20160501701

PATIENT
  Age: 72 Year
  Sex: Male
  Weight: 107.5 kg

DRUGS (3)
  1. XARELTO [Suspect]
     Active Substance: RIVAROXABAN
     Indication: THROMBOSIS PROPHYLAXIS
     Dosage: ONE TABLET WITH THE EVENING MEAL ONCE A DAY.
     Route: 048
     Dates: start: 20141226, end: 20150416
  2. XARELTO [Suspect]
     Active Substance: RIVAROXABAN
     Indication: CEREBROVASCULAR ACCIDENT PROPHYLAXIS
     Dosage: ONE TABLET WITH THE EVENING MEAL ONCE A DAY.
     Route: 048
     Dates: start: 20141226, end: 20150416
  3. XARELTO [Suspect]
     Active Substance: RIVAROXABAN
     Indication: ATRIAL FIBRILLATION
     Dosage: ONE TABLET WITH THE EVENING MEAL ONCE A DAY.
     Route: 048
     Dates: start: 20141226, end: 20150416

REACTIONS (1)
  - Muscle haemorrhage [Recovering/Resolving]

NARRATIVE: CASE EVENT DATE: 20150414
